FAERS Safety Report 20512131 (Version 1)
Quarter: 2022Q1

REPORT INFORMATION
  Report Type: Spontaneous
  Country: US (occurrence: None)
  Receive Date: 20220223
  Receipt Date: 20220223
  Transmission Date: 20220423
  Serious: Yes (Life-Threatening, Disabling, Other)
  Sender: FDA-Public Use
  Company Number: None

PATIENT
  Age: 39 Year
  Sex: Female
  Weight: 56.25 kg

DRUGS (1)
  1. MIRALAX [Suspect]
     Active Substance: POLYETHYLENE GLYCOL 3350
     Indication: Colonoscopy
     Dosage: OTHER QUANTITY : 1 OUNCE(S);?
     Route: 048
     Dates: start: 20211209, end: 20211209

REACTIONS (6)
  - Steatorrhoea [None]
  - General physical health deterioration [None]
  - Night sweats [None]
  - Renal disorder [None]
  - Lymphadenopathy [None]
  - Fatigue [None]

NARRATIVE: CASE EVENT DATE: 20211209
